FAERS Safety Report 17488484 (Version 1)
Quarter: 2020Q1

REPORT INFORMATION
  Report Type: Spontaneous
  Country: US (occurrence: US)
  Receive Date: 20200302
  Receipt Date: 20200302
  Transmission Date: 20200409
  Serious: Yes (Other)
  Sender: FDA-Public Use
  Company Number: None

PATIENT
  Age: 40 Year
  Sex: Male

DRUGS (4)
  1. ENBREL [Suspect]
     Active Substance: ETANERCEPT
  2. N/A [Concomitant]
     Active Substance: UNSPECIFIED INGREDIENT
  3. N/A [Concomitant]
     Active Substance: UNSPECIFIED INGREDIENT
  4. N/A [Concomitant]
     Active Substance: UNSPECIFIED INGREDIENT

REACTIONS (3)
  - Drug delivery system malfunction [None]
  - Incorrect dose administered by device [None]
  - Incorrect dose administered [None]

NARRATIVE: CASE EVENT DATE: 20200302
